FAERS Safety Report 5514616-2 (Version None)
Quarter: 2007Q4

REPORT INFORMATION
  Report Type: 
  Country: None (occurrence: None)
  Receive Date: 20071113
  Receipt Date: 20071109
  Transmission Date: 20080405
  Serious: Yes (Life-Threatening, Hospitalization)
  Sender: FDA-Public Use
  Company Number: DE-AVENTIS-200712637DE

PATIENT
  Age: 42 Year
  Sex: Female
  Weight: 110 kg

DRUGS (4)
  1. LANTUS [Suspect]
     Indication: SUICIDE ATTEMPT
     Route: 058
     Dates: start: 20071020
  2. APIDRA [Suspect]
     Indication: SUICIDE ATTEMPT
     Route: 058
     Dates: start: 20071020
  3. DELIX 5 [Concomitant]
     Route: 048
  4. ALLOPURINOL [Concomitant]
     Route: 048

REACTIONS (4)
  - HYPOGLYCAEMIA [None]
  - HYPOGLYCAEMIC COMA [None]
  - INTENTIONAL OVERDOSE [None]
  - SUICIDE ATTEMPT [None]
